FAERS Safety Report 12504092 (Version 1)
Quarter: 2016Q2

REPORT INFORMATION
  Report Type: Report from Study
  Country: US (occurrence: US)
  Receive Date: 20160628
  Receipt Date: 20160628
  Transmission Date: 20160815
  Serious: Yes (Other)
  Sender: FDA-Public Use
  Company Number: US-GILEAD-2016-0220819

PATIENT
  Age: 76 Year
  Sex: Female

DRUGS (1)
  1. AMBRISENTAN [Suspect]
     Active Substance: AMBRISENTAN
     Indication: PRODUCT USED FOR UNKNOWN INDICATION
     Dosage: 5 MG, UNK
     Route: 065

REACTIONS (8)
  - Glaucoma [Unknown]
  - Arthritis [Unknown]
  - Peripheral swelling [Unknown]
  - Pyrexia [Unknown]
  - Blood pressure increased [Unknown]
  - Dyspnoea [Unknown]
  - Anaemia [Unknown]
  - Hot flush [Unknown]

NARRATIVE: CASE EVENT DATE: 20160622
